FAERS Safety Report 25890919 (Version 1)
Quarter: 2025Q4

REPORT INFORMATION
  Report Type: Spontaneous
  Country: US (occurrence: US)
  Receive Date: 20251007
  Receipt Date: 20251007
  Transmission Date: 20260118
  Serious: No
  Sender: INTRABIO
  Company Number: US-IBO-202500163

PATIENT
  Age: 15 Year
  Sex: Female

DRUGS (1)
  1. AQNEURSA [Suspect]
     Active Substance: LEVACETYLLEUCINE
     Indication: Niemann-Pick disease
     Route: 065

REACTIONS (2)
  - Treatment noncompliance [Unknown]
  - Insomnia [Unknown]
